FAERS Safety Report 21211480 (Version 1)
Quarter: 2022Q3

REPORT INFORMATION
  Report Type: Spontaneous
  Country: US (occurrence: None)
  Receive Date: 20220814
  Receipt Date: 20220814
  Transmission Date: 20221027
  Serious: Yes (Life-Threatening, Disabling, Other)
  Sender: FDA-Public Use
  Company Number: None

PATIENT
  Age: 62 Year
  Sex: Female
  Weight: 60.75 kg

DRUGS (5)
  1. PAXLOVID [Suspect]
     Active Substance: NIRMATRELVIR\RITONAVIR
     Indication: COVID-19
     Dosage: FREQUENCY : TWICE A DAY;?
     Route: 048
     Dates: start: 20220809, end: 20220811
  2. DEVICE [Concomitant]
     Active Substance: DEVICE
  3. NEUPOGEN [Concomitant]
     Active Substance: FILGRASTIM
  4. VITAMIN D [Concomitant]
     Active Substance: VITAMIN D NOS
  5. MULTI MINERAL AND CALCIUM [Concomitant]

REACTIONS (7)
  - Decreased appetite [None]
  - Dysgeusia [None]
  - Nausea [None]
  - Abdominal pain [None]
  - Haematemesis [None]
  - Back pain [None]
  - Therapy cessation [None]

NARRATIVE: CASE EVENT DATE: 20220811
